FAERS Safety Report 12130516 (Version 1)
Quarter: 2016Q1

REPORT INFORMATION
  Report Type: Spontaneous
  Country: US (occurrence: None)
  Receive Date: 20160229
  Receipt Date: 20160229
  Transmission Date: 20160526
  Serious: Yes (Disabling)
  Sender: FDA-Public Use
  Company Number: None

PATIENT
  Age: 62 Year
  Sex: Female
  Weight: 61.69 kg

DRUGS (5)
  1. VITAMIN D [Concomitant]
     Active Substance: CHOLECALCIFEROL
  2. MULTIVITAMINS [Concomitant]
     Active Substance: VITAMINS
  3. PROBIOTICS [Concomitant]
     Active Substance: PROBIOTICS NOS
  4. CLINDAMYCIN HCL 300 MG RANBAXY [Suspect]
     Active Substance: CLINDAMYCIN HYDROCHLORIDE
     Indication: SINUSITIS
     Route: 048
     Dates: start: 20151207, end: 20151216
  5. CALCIUM [Concomitant]
     Active Substance: CALCIUM

REACTIONS (1)
  - Clostridium difficile colitis [None]

NARRATIVE: CASE EVENT DATE: 20160122
